FAERS Safety Report 9890284 (Version 3)
Quarter: 2014Q2

REPORT INFORMATION
  Report Type: Spontaneous
  Country: FR (occurrence: FR)
  Receive Date: 20140212
  Receipt Date: 20140428
  Transmission Date: 20141212
  Serious: Yes (Life-Threatening, Hospitalization, Other)
  Sender: FDA-Public Use
  Company Number: FR-ROCHE-1347727

PATIENT
  Age: 81 Year
  Sex: Male
  Weight: 71 kg

DRUGS (1)
  1. LUCENTIS [Suspect]
     Indication: AGE-RELATED MACULAR DEGENERATION
     Dosage: FORM STRENGTH-10 MG/ML?SECOND INJECTION OF LUCENTIS ON 29/APR/2013
     Route: 050
     Dates: start: 20130327

REACTIONS (4)
  - Renal failure [Unknown]
  - Acute pulmonary oedema [Recovered/Resolved]
  - Renal failure acute [Recovered/Resolved]
  - Lung disorder [Recovered/Resolved]
